FAERS Safety Report 7726695-2 (Version None)
Quarter: 2011Q3

REPORT INFORMATION
  Report Type: 
  Country: None (occurrence: None)
  Receive Date: 20110831
  Receipt Date: 20110815
  Transmission Date: 20111222
  Serious: Yes (Death)
  Sender: FDA-Public Use
  Company Number: 2011183302

PATIENT
  Age: 49 Year
  Sex: Female

DRUGS (3)
  1. CYTARABNE (CYTARABINE) [Suspect]
     Indication: ACUTE MYELOID LEUKAEMIA
     Dosage: 200 MG/M2,1X/DAY, INTRAVENOUS
     Route: 042
     Dates: start: 20090206, end: 20090212
  2. GEMTUZUMAB OZOGAMICIN (GEMTUZUMAB OZOGAMICIN) [Suspect]
     Indication: ACUTE LEUKAEMIA
     Dosage: 9.8 MG, 1XDAY, INTRAVENOUS
     Route: 042
     Dates: start: 20090209, end: 20090209
  3. CERUBIDINE [Suspect]
     Indication: ACUTE MYELOID LEUKAEMIA
     Dosage: 60 MG/M2, 1XDAY, INTRAVENOUS
     Route: 042
     Dates: start: 20090206, end: 20090208

REACTIONS (2)
  - VENOOCCLUSIVE LIVER DISEASE [None]
  - HEPATOSPLENOMEGALY [None]
